FAERS Safety Report 8612794-X (Version None)
Quarter: 2012Q3

REPORT INFORMATION
  Report Type: 
  Country: None (occurrence: None)
  Receive Date: 20120822
  Receipt Date: 20111020
  Transmission Date: 20120928
  Serious: No
  Sender: FDA-Public Use
  Company Number: US-ASTRAZENECA-2009SE17906

PATIENT
  Age: 50 Year
  Sex: Female

DRUGS (6)
  1. SYMBICORT [Suspect]
     Route: 055
     Dates: start: 20070101
  2. NEXIUM [Suspect]
     Route: 048
  3. NEXIUM [Suspect]
     Dosage: ONE NEXIUM PER DAY
     Route: 048
  4. SEROQUEL [Suspect]
     Route: 048
  5. SYNTHROID [Concomitant]
  6. NEXIUM [Suspect]
     Dosage: TWO NEXIUM PER DAY
     Route: 048

REACTIONS (5)
  - GASTRIC DISORDER [None]
  - DRUG EFFECT DECREASED [None]
  - GASTROOESOPHAGEAL REFLUX DISEASE [None]
  - DIARRHOEA [None]
  - CHEST PAIN [None]
